FAERS Safety Report 5151298-6 (Version None)
Quarter: 2006Q4

REPORT INFORMATION
  Report Type: 
  Country: None (occurrence: None)
  Receive Date: 20061115
  Receipt Date: 20050322
  Transmission Date: 20070319
  Serious: Yes (Other)
  Sender: FDA-Public Use
  Company Number: US-GLAXOSMITHKLINE-A0550854A

PATIENT
  Age: 73 Year
  Sex: Male

DRUGS (7)
  1. ADVAIR DISKUS 100/50 [Suspect]
     Indication: ASTHMA
     Dosage: 1PUFF TWICE PER DAY
     Route: 055
     Dates: start: 20040301
  2. SEREVENT [Suspect]
  3. UNKNOWN MEDICATION [Concomitant]
     Route: 065
  4. METOPROLOL TARTRATE [Concomitant]
  5. BENAZEPRIL HYDROCHLORIDE [Concomitant]
  6. LIPITOR [Concomitant]
  7. PLAVIX [Concomitant]

REACTIONS (4)
  - ASTHMA [None]
  - DRUG DOSE OMISSION [None]
  - DYSPHONIA [None]
  - MYOCARDIAL INFARCTION [None]
